FAERS Safety Report 5454805-9 (Version None)
Quarter: 2007Q3

REPORT INFORMATION
  Report Type: 
  Country: None (occurrence: None)
  Receive Date: 20070917
  Receipt Date: 20070831
  Transmission Date: 20080115
  Serious: No
  Sender: FDA-Public Use
  Company Number: US-BOEHRINGER INGELHEIM PHARMACEUTICALS, INC.-2007-BP-20457BP

PATIENT
  Sex: Female

DRUGS (3)
  1. SPIRIVA [Suspect]
     Indication: WHEEZING
     Route: 055
     Dates: start: 20070829
  2. SPIRIVA [Suspect]
     Indication: INFLUENZA
  3. FACTIVE [Concomitant]
     Indication: INFLUENZA

REACTIONS (2)
  - FOREIGN BODY TRAUMA [None]
  - PAIN [None]
